FAERS Safety Report 12790363 (Version 1)
Quarter: 2016Q3

REPORT INFORMATION
  Report Type: Spontaneous
  Country: US (occurrence: US)
  Receive Date: 20160928
  Receipt Date: 20160928
  Transmission Date: 20161109
  Serious: No
  Sender: FDA-Public Use
  Company Number: US-009507513-1609USA007666

PATIENT
  Age: 32 Year
  Sex: Female
  Weight: 68.48 kg

DRUGS (1)
  1. NEXPLANON [Suspect]
     Active Substance: ETONOGESTREL
     Indication: MENSTRUAL CYCLE MANAGEMENT
     Dosage: 1 ROD UP TO 3 YEARS
     Route: 059
     Dates: start: 20160913

REACTIONS (3)
  - Implant site bruising [Unknown]
  - Implant site erythema [Unknown]
  - Product use issue [Unknown]

NARRATIVE: CASE EVENT DATE: 20160913
